FAERS Safety Report 20689599 (Version 4)
Quarter: 2022Q3

REPORT INFORMATION
  Report Type: Report from Study
  Country: CA (occurrence: CA)
  Receive Date: 20220408
  Receipt Date: 20220714
  Transmission Date: 20221026
  Serious: Yes (Hospitalization, Other)
  Sender: FDA-Public Use
  Company Number: CA-NOVARTISPH-NVSC2022CA079169

PATIENT
  Sex: Female

DRUGS (6)
  1. VOLTAREN [Suspect]
     Active Substance: DICLOFENAC SODIUM
     Indication: Product used for unknown indication
     Dosage: UNK, PRN
     Route: 048
     Dates: start: 2020, end: 2020
  2. VOLTAREN [Suspect]
     Active Substance: DICLOFENAC SODIUM
     Dosage: 1X1000 MG, BID
     Route: 048
     Dates: start: 202011, end: 202102
  3. HUMIRA [Concomitant]
     Active Substance: ADALIMUMAB
     Indication: Product used for unknown indication
     Dosage: UNK
     Route: 058
     Dates: start: 20210407
  4. SULFASALAZINE [Concomitant]
     Active Substance: SULFASALAZINE
     Indication: Product used for unknown indication
     Dosage: UNK, BID
     Route: 048
     Dates: start: 202108
  5. NAPROXEN [Concomitant]
     Active Substance: NAPROXEN
     Indication: Product used for unknown indication
     Dosage: UNK
     Route: 048
     Dates: start: 202001, end: 202205
  6. NAPROXEN [Concomitant]
     Active Substance: NAPROXEN
     Dosage: 2 DOSAGE FORM, BID
     Route: 048
     Dates: start: 202001, end: 202005

REACTIONS (11)
  - Hepatic enzyme increased [Unknown]
  - Ankylosing spondylitis [Unknown]
  - Back pain [Unknown]
  - Arthralgia [Unknown]
  - Fatigue [Unknown]
  - Joint swelling [Unknown]
  - Discomfort [Unknown]
  - Musculoskeletal stiffness [Unknown]
  - Infection [Unknown]
  - Liver disorder [Unknown]
  - Drug ineffective [Unknown]
